FAERS Safety Report 18661948 (Version 1)
Quarter: 2020Q4

REPORT INFORMATION
  Report Type: Report from Study
  Country: FR (occurrence: FR)
  Receive Date: 20201224
  Receipt Date: 20201224
  Transmission Date: 20210114
  Serious: Yes (Death, Other)
  Sender: FDA-Public Use
  Company Number: FR-TAKEDA-2020TUS058789

PATIENT
  Age: 81 Year
  Sex: Female

DRUGS (1)
  1. PONATINIB [Suspect]
     Active Substance: PONATINIB
     Indication: CHRONIC MYELOID LEUKAEMIA
     Dosage: 30 MILLIGRAM, QD
     Route: 048
     Dates: start: 20191022, end: 20200413

REACTIONS (2)
  - Disease progression [Fatal]
  - Chronic myeloid leukaemia [Fatal]

NARRATIVE: CASE EVENT DATE: 20200402
